FAERS Safety Report 9254058 (Version 1)
Quarter: 2013Q1

REPORT INFORMATION
  Report Type: Spontaneous
  Country: US (occurrence: None)
  Receive Date: 20121203
  Receipt Date: 20121203
  Transmission Date: 20140127
  Serious: Yes (Hospitalization, Disabling, Other)
  Sender: FDA-Public Use
  Company Number: 2012SP005882

PATIENT
  Age: 46 Year
  Sex: Female
  Weight: 70.31 kg

DRUGS (1)
  1. NUVARING [Suspect]
     Indication: CONTRACEPTION
     Dates: start: 200810, end: 200901

REACTIONS (9)
  - Pulmonary embolism [None]
  - Phlebitis [None]
  - Pyrexia [None]
  - Mental disorder [None]
  - Pain in extremity [None]
  - Muscle strain [None]
  - Bronchitis [None]
  - Muscle spasms [None]
  - Deep vein thrombosis [None]
